FAERS Safety Report 21320580 (Version 2)
Quarter: 2022Q3

REPORT INFORMATION
  Report Type: Spontaneous
  Country: GB (occurrence: GB)
  Receive Date: 20220912
  Receipt Date: 20220916
  Transmission Date: 20221026
  Serious: Yes (Other)
  Sender: FDA-Public Use
  Company Number: GB-Accord-276284

PATIENT
  Age: 70 Year
  Sex: Male

DRUGS (2)
  1. CARBOPLATIN [Suspect]
     Active Substance: CARBOPLATIN
     Indication: Neuroendocrine carcinoma of the bladder
     Dosage: CUMULATIVE CYCLE: 3 CYCLICAL, 4 CYCLES
  2. ETOPOSIDE [Concomitant]
     Active Substance: ETOPOSIDE
     Indication: Neuroendocrine carcinoma of the bladder

REACTIONS (7)
  - Off label use [Unknown]
  - Arteriosclerotic retinopathy [Not Recovered/Not Resolved]
  - Optic disc haemorrhage [Not Recovered/Not Resolved]
  - Optic atrophy [Not Recovered/Not Resolved]
  - Retinal oedema [Recovered/Resolved]
  - Subretinal fluid [Recovered/Resolved]
  - Pupillary reflex impaired [Not Recovered/Not Resolved]
